FAERS Safety Report 8839853 (Version 1)
Quarter: 2012Q4

REPORT INFORMATION
  Report Type: 
  Country: US (occurrence: US)
  Receive Date: 20121015
  Receipt Date: 20121015
  Transmission Date: 20130627
  Serious: No
  Sender: FDA-Public Use
  Company Number: US-BRISTOL-MYERS SQUIBB COMPANY-16829525

PATIENT
  Sex: Female

DRUGS (1)
  1. KENALOG-40 INJ [Suspect]
     Indication: ARTHRALGIA
     Dates: start: 20120717

REACTIONS (3)
  - Pyrexia [Unknown]
  - Blister [Unknown]
  - Fatigue [Unknown]
